FAERS Safety Report 7203367-4 (Version None)
Quarter: 2010Q4

REPORT INFORMATION
  Report Type: 
  Country: None (occurrence: None)
  Receive Date: 20101216
  Receipt Date: 20101201
  Transmission Date: 20110411
  Serious: Yes (Hospitalization)
  Sender: FDA-Public Use
  Company Number: DSA_44497_2010

PATIENT
  Age: 62 Year
  Sex: Female

DRUGS (4)
  1. DILTIAZEM HCL [Suspect]
     Indication: PRODUCT USED FOR UNKNOWN INDICATION
     Dosage: (100 MG)
  2. DILTIAZEM HYDROCHLORIDE [Suspect]
     Indication: PRODUCT USED FOR UNKNOWN INDICATION
     Dosage: (30 MG)
  3. CARVEDILOL [Suspect]
     Indication: PRODUCT USED FOR UNKNOWN INDICATION
     Dosage: (12.5 MG QD), (2.5 MG QD)
  4. DISOPYRAMIDE PHOSPHATE (RHYTHMODAN-DISOPYRAMIDE PHOSPHATE) [Suspect]
     Indication: ARRHYTHMIA
     Dosage: (DF)

REACTIONS (4)
  - ATRIAL FIBRILLATION [None]
  - CARDIAC ARREST [None]
  - SICK SINUS SYNDROME [None]
  - XANTHOPSIA [None]
